FAERS Safety Report 11668757 (Version 1)
Quarter: 2015Q4

REPORT INFORMATION
  Report Type: Report from Study
  Country: US (occurrence: US)
  Receive Date: 20151027
  Receipt Date: 20151027
  Transmission Date: 20160304
  Serious: Yes (Hospitalization, Other)
  Sender: FDA-Public Use
  Company Number: US-ACTELION-A-US2015-126117

PATIENT
  Age: 67 Year
  Sex: Male

DRUGS (1)
  1. TRACLEER [Suspect]
     Active Substance: BOSENTAN
     Indication: COR PULMONALE CHRONIC
     Dosage: UNK
     Route: 048

REACTIONS (2)
  - Seizure [Unknown]
  - Prostatic operation [Unknown]
